FAERS Safety Report 4371681-6 (Version None)
Quarter: 2004Q2

REPORT INFORMATION
  Report Type: 
  Country: None (occurrence: None)
  Receive Date: 20040526
  Receipt Date: 20040513
  Transmission Date: 20050107
  Serious: Yes (Other)
  Sender: FDA-Public Use
  Company Number: 205807

PATIENT
  Age: 39 Year
  Sex: Female
  Weight: 146.5 kg

DRUGS (8)
  1. HERCEPTIN [Suspect]
     Indication: BREAST CANCER
     Dosage: SEE IMAGE
     Route: 042
     Dates: start: 20031104, end: 20031104
  2. AVALIDE [Suspect]
  3. TAXOL [Concomitant]
  4. ATENOLOL [Concomitant]
  5. MULTIVITAMIN (MULTIVITAMINS NOS) [Concomitant]
  6. COUMADIN [Concomitant]
  7. CELEBREX [Concomitant]
  8. LAMISIL [Concomitant]

REACTIONS (1)
  - HAEMOLYSIS [None]
